FAERS Safety Report 15347790 (Version 1)
Quarter: 2018Q3

REPORT INFORMATION
  Report Type: Report from Study
  Country: US (occurrence: US)
  Receive Date: 20180904
  Receipt Date: 20180904
  Transmission Date: 20181010
  Serious: Yes (Other)
  Sender: FDA-Public Use
  Company Number: US-BAYER-2018-161815

PATIENT
  Age: 77 Year
  Sex: Female
  Weight: 59.41 kg

DRUGS (4)
  1. ADEMPAS [Suspect]
     Active Substance: RIOCIGUAT
     Indication: PULMONARY ARTERIAL HYPERTENSION
     Dosage: 2.5 MG, TID
     Route: 048
  2. AMLODIPINE [Concomitant]
     Active Substance: AMLODIPINE BESYLATE
     Dosage: UNK
  3. XARELTO [Concomitant]
     Active Substance: RIVAROXABAN
     Dosage: UNK
  4. ADEMPAS [Suspect]
     Active Substance: RIOCIGUAT
     Indication: PULMONARY ARTERIAL HYPERTENSION
     Dosage: UNK
     Dates: start: 20180220

REACTIONS (10)
  - Eye pain [None]
  - Feeling abnormal [None]
  - Blood pressure diastolic decreased [Unknown]
  - Chest discomfort [None]
  - Blood pressure systolic increased [None]
  - Dizziness [Unknown]
  - Sinus operation [None]
  - Headache [Unknown]
  - Asthenia [None]
  - Ear pain [None]

NARRATIVE: CASE EVENT DATE: 2018
